FAERS Safety Report 25596670 (Version 5)
Quarter: 2025Q3

REPORT INFORMATION
  Report Type: Spontaneous
  Country: US (occurrence: US)
  Receive Date: 20250723
  Receipt Date: 20250828
  Transmission Date: 20251021
  Serious: Yes (Death)
  Sender: ROCHE
  Company Number: US-ROCHE-10000345942

PATIENT
  Age: 76 Year
  Sex: Male

DRUGS (30)
  1. XOLAIR [Suspect]
     Active Substance: OMALIZUMAB
     Indication: Pemphigoid
     Dosage: STRENGTH AND DOSE:300MG/2ML
     Route: 058
     Dates: start: 20250701, end: 20250704
  2. XOLAIR [Suspect]
     Active Substance: OMALIZUMAB
     Route: 058
     Dates: start: 20250624
  3. DUPIXENT [Concomitant]
     Active Substance: DUPILUMAB
  4. DAPSONE [Concomitant]
     Active Substance: DAPSONE
  5. CYPROHEPTADINE [Concomitant]
     Active Substance: CYPROHEPTADINE
  6. NIACINAMIDE [Concomitant]
     Active Substance: NIACINAMIDE
  7. ZINC [Concomitant]
     Active Substance: ZINC
  8. APREPITANT [Concomitant]
     Active Substance: APREPITANT
  9. BETA CAROTENE [Concomitant]
     Active Substance: BETA CAROTENE
  10. CLOBETASOL [Concomitant]
     Active Substance: CLOBETASOL
  11. DOXYCYCLINE HYCLATE [Concomitant]
     Active Substance: DOXYCYCLINE HYCLATE
  12. FOLIC ACID [Concomitant]
     Active Substance: FOLIC ACID
  13. HYDROCORTISONE [Concomitant]
     Active Substance: HYDROCORTISONE
  14. HYDROXYZINE [Concomitant]
     Active Substance: HYDROXYZINE HYDROCHLORIDE
  15. KETOCONAZOLE [Concomitant]
     Active Substance: KETOCONAZOLE
  16. METFORMIN [Concomitant]
     Active Substance: METFORMIN HYDROCHLORIDE
  17. MONTELUKAST [Concomitant]
     Active Substance: MONTELUKAST
  18. MUPIROCIN [Concomitant]
     Active Substance: MUPIROCIN
  19. NEXIUM [Concomitant]
     Active Substance: ESOMEPRAZOLE MAGNESIUM
  20. SIMVASTATIN [Concomitant]
     Active Substance: SIMVASTATIN
  21. TERAZOSIN [Concomitant]
     Active Substance: TERAZOSIN HYDROCHLORIDE
  22. VANICREAM [Concomitant]
     Active Substance: TITANIUM DIOXIDE\ZINC OXIDE
  23. AMLODIPINE BESYLATE\BENAZEPRIL HYDROCHLORIDE [Concomitant]
     Active Substance: AMLODIPINE BESYLATE\BENAZEPRIL HYDROCHLORIDE
  24. HUMALOG [Concomitant]
     Active Substance: INSULIN LISPRO
  25. LANTUS [Concomitant]
     Active Substance: INSULIN GLARGINE
  26. MAXZIDE [Concomitant]
     Active Substance: HYDROCHLOROTHIAZIDE\TRIAMTERENE
  27. METOPROLOL SUCCINATE [Concomitant]
     Active Substance: METOPROLOL SUCCINATE
  28. ACIDOPHILUS [Concomitant]
     Active Substance: LACTOBACILLUS ACIDOPHILUS
  29. METHYLPREDNISOLONE [Concomitant]
     Active Substance: METHYLPREDNISOLONE
     Dates: start: 20250429
  30. IRON SUCROSE [Concomitant]
     Active Substance: IRON SUCROSE
     Dates: start: 20250626

REACTIONS (2)
  - Death [Fatal]
  - Off label use [Unknown]

NARRATIVE: CASE EVENT DATE: 20250704
